FAERS Safety Report 11752354 (Version 1)
Quarter: 2015Q4

REPORT INFORMATION
  Report Type: Report from Study
  Country: US (occurrence: US)
  Receive Date: 20151118
  Receipt Date: 20151118
  Transmission Date: 20160304
  Serious: Yes (Hospitalization, Other)
  Sender: FDA-Public Use
  Company Number: US-AMGEN-USASL2015121101

PATIENT
  Age: 70 Year
  Sex: Female

DRUGS (1)
  1. ENBREL [Suspect]
     Active Substance: ETANERCEPT
     Indication: RHEUMATOID ARTHRITIS
     Dosage: 50 MG, QWK
     Route: 065

REACTIONS (12)
  - Arthralgia [Unknown]
  - Arterial thrombosis [Unknown]
  - Musculoskeletal pain [Unknown]
  - Blood pressure decreased [Unknown]
  - Muscle spasms [Unknown]
  - Spinal pain [Unknown]
  - Abasia [Unknown]
  - Dizziness [Unknown]
  - Perineurial cyst [Unknown]
  - Vascular graft [Unknown]
  - Rheumatoid arthritis [Unknown]
  - Pain in extremity [Unknown]

NARRATIVE: CASE EVENT DATE: 2010
